FAERS Safety Report 19137675 (Version 2)
Quarter: 2021Q2

REPORT INFORMATION
  Report Type: Spontaneous
  Country: US (occurrence: US)
  Receive Date: 20210414
  Receipt Date: 20210423
  Transmission Date: 20210717
  Serious: No
  Sender: FDA-Public Use
  Company Number: US-ELI_LILLY_AND_COMPANY-US202104000081

PATIENT
  Age: 62 Year
  Sex: Female

DRUGS (7)
  1. BASAGLAR [Suspect]
     Active Substance: INSULIN GLARGINE
     Dosage: 9 U, UNKNOWN
     Route: 065
     Dates: start: 202005
  2. BASAGLAR [Suspect]
     Active Substance: INSULIN GLARGINE
     Dosage: 9 U, UNKNOWN
     Route: 065
     Dates: start: 202005
  3. BASAGLAR [Suspect]
     Active Substance: INSULIN GLARGINE
     Indication: DIABETES MELLITUS
     Dosage: 9 U, UNKNOWN
     Route: 065
     Dates: start: 202005
  4. BASAGLAR [Suspect]
     Active Substance: INSULIN GLARGINE
     Indication: DIABETES MELLITUS
     Dosage: 9 U, UNKNOWN
     Route: 065
     Dates: start: 202005
  5. BASAGLAR [Suspect]
     Active Substance: INSULIN GLARGINE
     Dosage: 9 U, UNKNOWN
     Route: 065
     Dates: start: 202005
  6. BASAGLAR [Suspect]
     Active Substance: INSULIN GLARGINE
     Indication: DIABETES MELLITUS
     Dosage: 9 U, UNKNOWN
     Route: 065
     Dates: start: 202005
  7. BASAGLAR [Suspect]
     Active Substance: INSULIN GLARGINE
     Dosage: 9 U, UNKNOWN
     Route: 065
     Dates: start: 202005

REACTIONS (6)
  - Vision blurred [Unknown]
  - Incorrect dose administered [Unknown]
  - Hypersensitivity [Unknown]
  - Laryngitis [Unknown]
  - Sinus disorder [Unknown]
  - Road traffic accident [Unknown]

NARRATIVE: CASE EVENT DATE: 202101
